FAERS Safety Report 22998267 (Version 2)
Quarter: 2023Q4

REPORT INFORMATION
  Report Type: Spontaneous
  Country: DE (occurrence: DE)
  Receive Date: 20230928
  Receipt Date: 20231104
  Transmission Date: 20240110
  Serious: Yes (Other)
  Sender: FDA-Public Use
  Company Number: DE-BRISTOL-MYERS SQUIBB COMPANY-2023-130372

PATIENT
  Age: 59 Year
  Sex: Male
  Weight: 111 kg

DRUGS (18)
  1. DOCETAXEL [Suspect]
     Active Substance: DOCETAXEL\DOCETAXEL ANHYDROUS
     Indication: Gastric cancer
     Dosage: 107 MILLIGRAM (EVERY 2 WEEK)
     Route: 042
     Dates: start: 20230324
  2. FLUOROURACIL [Suspect]
     Active Substance: FLUOROURACIL
     Indication: Gastric cancer
     Dosage: 5569 MILLIGRAM (EVERY 2 WEEK)
     Route: 042
     Dates: start: 20230324
  3. OPDIVO [Suspect]
     Active Substance: NIVOLUMAB
     Indication: Gastric cancer
     Dosage: 240 MILLIGRAM (EVERY 2 WEEKS)
     Route: 042
     Dates: start: 20230323
  4. OXALIPLATIN [Suspect]
     Active Substance: OXALIPLATIN
     Indication: Gastric cancer
     Dosage: 182 MILLIGRAM (EVERY 2 WEEK)
     Route: 042
     Dates: start: 20230324
  5. BENZYDAMINE [Concomitant]
     Active Substance: BENZYDAMINE
     Indication: Prophylaxis
     Dosage: UNK
     Route: 048
     Dates: start: 20230323
  6. BISOPROLOL [Concomitant]
     Active Substance: BISOPROLOL\BISOPROLOL FUMARATE
     Indication: Product used for unknown indication
     Dosage: 5 MILLIGRAM, ONCE A DAY
     Route: 048
     Dates: start: 20170101
  7. EPLERENONE [Concomitant]
     Active Substance: EPLERENONE
     Indication: Product used for unknown indication
     Dosage: 50 MILLIGRAM, ONCE A DAY
     Route: 048
     Dates: start: 20170101
  8. ESOMEPRAZOLE [Concomitant]
     Active Substance: ESOMEPRAZOLE
     Indication: Product used for unknown indication
     Dosage: 40 MILLIGRAM, ONCE A DAY
     Route: 048
     Dates: start: 20230306
  9. LEUCOVORIN [Concomitant]
     Active Substance: LEUCOVORIN\LEUCOVORIN CALCIUM
     Indication: Prophylaxis
     Dosage: 200 MILLIGRAM/SQ. METER
     Route: 042
     Dates: start: 20230324
  10. INDAPAMIDE [Concomitant]
     Active Substance: INDAPAMIDE
     Indication: Product used for unknown indication
     Dosage: 1.5 MILLIGRAM, ONCE A DAY
     Route: 048
     Dates: start: 20170101
  11. Kalinor [Concomitant]
     Indication: Product used for unknown indication
     Dosage: 1.56 GRAM (3 WEEKLY)
     Route: 048
  12. LOPERAMIDE [Concomitant]
     Active Substance: LOPERAMIDE
     Indication: Gastric cancer
     Dosage: 4 GRAM
     Route: 048
     Dates: start: 20230313
  13. MCP [Concomitant]
     Active Substance: METOCLOPRAMIDE HYDROCHLORIDE
     Indication: Gastric cancer
     Dosage: 10 MILLIGRAM
     Route: 048
     Dates: start: 20230313
  14. METAMIZOL [Concomitant]
     Active Substance: METAMIZOLE SODIUM
     Indication: Product used for unknown indication
     Dosage: 1 GRAM (4 DAILY)
     Route: 048
     Dates: start: 20230306
  15. OLIMEL [Concomitant]
     Active Substance: AMINO ACIDS\DEXTROSE\SOYBEAN OIL
     Indication: Gastric cancer
     Dosage: 1500 MILLILITER, ONCE A DAY
     Route: 042
     Dates: start: 20230313, end: 20230504
  16. ONDANSETRON [Concomitant]
     Active Substance: ONDANSETRON
     Indication: Gastric cancer
     Dosage: 4 MILLIGRAM
     Route: 048
     Dates: start: 20230313
  17. TORSEMIDE [Concomitant]
     Active Substance: TORSEMIDE
     Indication: Product used for unknown indication
     Dosage: 5 MILLIGRAM, ONCE A DAY
     Route: 048
     Dates: start: 20230324
  18. VALSARTAN [Concomitant]
     Active Substance: VALSARTAN
     Indication: Product used for unknown indication
     Dosage: 160 MILLIGRAM, ONCE A DAY
     Route: 048
     Dates: start: 20170101

REACTIONS (2)
  - Polyneuropathy [Unknown]
  - Toothache [Unknown]

NARRATIVE: CASE EVENT DATE: 20230406
